FAERS Safety Report 5279847-8 (Version None)
Quarter: 2007Q1

REPORT INFORMATION
  Report Type: 
  Country: None (occurrence: None)
  Receive Date: 20061218
  Receipt Date: 20060623
  Transmission Date: 20070707
  Serious: Yes (Other)
  Sender: FDA-Public Use
  Company Number: US200606005330

PATIENT
  Age: 11 Year
  Sex: Male
  Weight: 47.6 kg

DRUGS (5)
  1. HUMALOG LISPRO (LISPRO LISPRO) PEN, DISPOSABLE [Suspect]
     Indication: DIABETES MELLITUS
     Dosage: SEE IMAGE
     Dates: start: 20050101
  2. HUMALOG LISPRO (LISPRO LISPRO) PEN, DISPOSABLE [Suspect]
     Indication: DIABETES MELLITUS
     Dosage: SEE IMAGE
     Dates: start: 20050101
  3. HUMULIN N [Suspect]
     Indication: DIABETES MELLITUS
     Dates: end: 20060526
  4. HUMALOG PEN [Concomitant]
  5. LANTUS [Concomitant]

REACTIONS (3)
  - BLOOD GLUCOSE DECREASED [None]
  - BLOOD GLUCOSE INCREASED [None]
  - CONVULSION [None]
